FAERS Safety Report 15149586 (Version 3)
Quarter: 2019Q2

REPORT INFORMATION
  Report Type: Spontaneous
  Country: US (occurrence: US)
  Receive Date: 20180716
  Receipt Date: 20190401
  Transmission Date: 20190711
  Serious: No
  Sender: FDA-Public Use
  Company Number: US-VANDA PHARMACEUTICALS, INC-2018TASUS002013

PATIENT
  Age: 78 Year
  Sex: Male

DRUGS (2)
  1. HETLIOZ [Suspect]
     Active Substance: TASIMELTEON
     Dosage: 20 MG, QHS
     Route: 048
     Dates: start: 20180228, end: 20180328
  2. HETLIOZ [Suspect]
     Active Substance: TASIMELTEON
     Indication: NON-24-HOUR SLEEP-WAKE DISORDER
     Dosage: 20 MG, EVERY 24 HOURS BEFORE BED
     Route: 048
     Dates: start: 20180228, end: 20180328

REACTIONS (3)
  - Therapeutic product effect decreased [Unknown]
  - Drug ineffective [Unknown]
  - Incorrect product administration duration [Unknown]
